FAERS Safety Report 6894354-4 (Version None)
Quarter: 2010Q3

REPORT INFORMATION
  Report Type: 
  Country: None (occurrence: None)
  Receive Date: 20100802
  Receipt Date: 20100722
  Transmission Date: 20110219
  Serious: Yes (Hospitalization)
  Sender: FDA-Public Use
  Company Number: SE-ASTRAZENECA-2010SE34474

PATIENT
  Age: 79 Year
  Sex: Male

DRUGS (2)
  1. FELODIPINE [Suspect]
     Indication: HYPERTONIA
     Route: 048
     Dates: end: 20091116
  2. XATRAL OD [Suspect]
     Indication: URINARY RETENTION
     Route: 065
     Dates: start: 20090101, end: 20091116

REACTIONS (1)
  - ORTHOSTATIC HYPOTENSION [None]
